FAERS Safety Report 8667476 (Version 2)
Quarter: 2012Q4

REPORT INFORMATION
  Report Type: 
  Country: JP (occurrence: JP)
  Receive Date: 20120717
  Receipt Date: 20121017
  Transmission Date: 20130627
  Serious: Yes (Hospitalization)
  Sender: FDA-Public Use
  Company Number: JP-MSD-1207JPN000214

PATIENT
  Age: 73 Year
  Sex: Female
  Weight: 44 kg

DRUGS (6)
  1. GLACTIV [Suspect]
     Indication: TYPE 2 DIABETES MELLITUS
     Dosage: 50 mg, qd
     Route: 048
     Dates: start: 20110311
  2. GLIMICRON [Concomitant]
     Dosage: 80 mg, UNK
     Dates: end: 20110310
  3. GLIMICRON [Concomitant]
     Dosage: 40 mg, UNK
     Dates: start: 20110311
  4. METGLUCO [Concomitant]
     Dosage: UNK
     Dates: start: 20110513
  5. LIVALO [Concomitant]
  6. MAGLAX (MAGNESIUM OXIDE) [Concomitant]
     Dosage: UNK
     Dates: start: 20110819

REACTIONS (5)
  - Hand fracture [Unknown]
  - Fall [None]
  - Road traffic accident [None]
  - Blood pressure diastolic decreased [None]
  - Blood glucose increased [None]
